FAERS Safety Report 21692828 (Version 1)
Quarter: 2022Q4

REPORT INFORMATION
  Report Type: Spontaneous
  Country: US (occurrence: None)
  Receive Date: 20221206
  Receipt Date: 20221206
  Transmission Date: 20230112
  Serious: No
  Sender: FDA-Public Use
  Company Number: None

PATIENT
  Sex: Male

DRUGS (1)
  1. NIVESTYM [Suspect]
     Active Substance: FILGRASTIM-AAFI
     Indication: B-cell prolymphocytic leukaemia
     Dosage: INJECT 0.8 ML (480 MCG TOTALL UNDER THE SKIN DAILY FOR 7 DAYS, EVERY 2 WEEKS
     Route: 058
     Dates: start: 20221031

REACTIONS (2)
  - Headache [None]
  - Alopecia [None]
